FAERS Safety Report 4857052-4 (Version None)
Quarter: 2005Q4

REPORT INFORMATION
  Report Type: 
  Country: None (occurrence: None)
  Receive Date: 20051219
  Receipt Date: 20041216
  Transmission Date: 20060501
  Serious: No
  Sender: FDA-Public Use
  Company Number: US-GLAXOSMITHKLINE-A0537585A

PATIENT
  Sex: Female

DRUGS (3)
  1. NICODERM CQ [Suspect]
     Dates: start: 20041215
  2. ATIVAN [Concomitant]
  3. ENTERAL PRODUCT (UNSPECIFIED) [Concomitant]

REACTIONS (4)
  - DIFFICULTY IN WALKING [None]
  - DIZZINESS [None]
  - INSOMNIA [None]
  - MUSCLE SPASMS [None]
